FAERS Safety Report 17744899 (Version 1)
Quarter: 2020Q2

REPORT INFORMATION
  Report Type: Spontaneous
  Country: US (occurrence: US)
  Receive Date: 20200504
  Receipt Date: 20200504
  Transmission Date: 20200714
  Serious: Yes (Disabling)
  Sender: FDA-Public Use
  Company Number: None

PATIENT
  Age: 68 Year
  Sex: Female
  Weight: 68.4 kg

DRUGS (9)
  1. ASPIRIN. [Concomitant]
     Active Substance: ASPIRIN
  2. TUMS [Concomitant]
     Active Substance: CALCIUM CARBONATE
  3. OMEPRAZOLE. [Concomitant]
     Active Substance: OMEPRAZOLE
  4. HUMIRA [Suspect]
     Active Substance: ADALIMUMAB
     Indication: HIDRADENITIS
     Dosage: ?          QUANTITY:1 INJECTION(S);OTHER FREQUENCY:WEEKLY;?
     Route: 058
  5. ATENOLOL. [Concomitant]
     Active Substance: ATENOLOL
  6. DAILY MULTI VITAMIN [Concomitant]
  7. FOLIC ACID. [Concomitant]
     Active Substance: FOLIC ACID
  8. STATIN [Concomitant]
     Active Substance: UNSPECIFIED INGREDIENT
  9. VITAMIN D [Concomitant]
     Active Substance: VITAMIN D NOS

REACTIONS (17)
  - Condition aggravated [None]
  - Cough [None]
  - Headache [None]
  - Diarrhoea [None]
  - Asthenia [None]
  - Taste disorder [None]
  - Chills [None]
  - Skin lesion [None]
  - Pyrexia [None]
  - Abdominal pain [None]
  - Skin discharge [None]
  - Pain [None]
  - Fatigue [None]
  - Dyspnoea [None]
  - Nausea [None]
  - Weight decreased [None]
  - Dysuria [None]

NARRATIVE: CASE EVENT DATE: 20191031
